FAERS Safety Report 24934534 (Version 1)
Quarter: 2025Q1

REPORT INFORMATION
  Report Type: Report from Study
  Country: CA (occurrence: CA)
  Receive Date: 20250206
  Receipt Date: 20250206
  Transmission Date: 20250409
  Serious: Yes (Other)
  Sender: EXELIXIS
  Company Number: CA-IPSEN Group, Research and Development-2024-13154

PATIENT
  Sex: Male

DRUGS (13)
  1. CABOMETYX [Suspect]
     Active Substance: CABOZANTINIB S-MALATE
     Indication: Renal cell carcinoma
     Route: 065
     Dates: start: 20190312
  2. MIRALAX [Concomitant]
     Active Substance: POLYETHYLENE GLYCOL 3350
  3. POTASSIUM CHLORIDE [Concomitant]
     Active Substance: POTASSIUM CHLORIDE
  4. CALCIUM [Concomitant]
     Active Substance: CALCIUM
  5. HYDROCHLOROTHIAZIDE [Concomitant]
     Active Substance: HYDROCHLOROTHIAZIDE
  6. HYDROMORPHONE [Concomitant]
     Active Substance: HYDROMORPHONE
  7. AMLODIPINE [Concomitant]
     Active Substance: AMLODIPINE BESYLATE
  8. CASANTHRANOL\DOCUSATE SODIUM [Concomitant]
     Active Substance: CASANTHRANOL\DOCUSATE SODIUM
  9. SENOKOT [Concomitant]
     Active Substance: SENNOSIDES
  10. ZOMETA [Concomitant]
     Active Substance: ZOLEDRONIC ACID
  11. PREGABALIN [Concomitant]
     Active Substance: PREGABALIN
  12. TOVIAZ [Concomitant]
     Active Substance: FESOTERODINE FUMARATE
  13. DULOXETINE [Concomitant]
     Active Substance: DULOXETINE

REACTIONS (1)
  - Malignant neoplasm progression [Unknown]
